FAERS Safety Report 11744260 (Version 2)
Quarter: 2016Q2

REPORT INFORMATION
  Report Type: Report from Study
  Country: US (occurrence: US)
  Receive Date: 20151116
  Receipt Date: 20160412
  Transmission Date: 20160815
  Serious: No
  Sender: FDA-Public Use
  Company Number: US-MDT-ADR-2015-02160

PATIENT
  Age: 44 Year
  Sex: Female

DRUGS (10)
  1. COMPOUNDED BACLOFEN [Suspect]
     Active Substance: BACLOFEN
     Dosage: 30.02 MCG/DAY
     Route: 037
  2. CLONIDINE. [Suspect]
     Active Substance: CLONIDINE
     Dosage: 15.01 MCG/DAY
     Route: 037
     Dates: start: 20151015
  3. COMPOUNDED BACLOFEN [Suspect]
     Active Substance: BACLOFEN
     Dosage: 15.01 MCG/DAY
     Route: 037
     Dates: start: 20151015
  4. BUPIVACAINE. [Suspect]
     Active Substance: BUPIVACAINE
     Dosage: 4.993 MG/DAY
     Route: 037
  5. CLONIDINE. [Suspect]
     Active Substance: CLONIDINE
     Dosage: 49.93 MCG/DAY
     Route: 037
     Dates: start: 20150827
  6. COMPOUNDED BACLOFEN [Suspect]
     Active Substance: BACLOFEN
     Dosage: 49.93 MCG/DAY
     Route: 037
     Dates: start: 20150827
  7. BUPIVACAINE. [Suspect]
     Active Substance: BUPIVACAINE
     Dosage: 3.002 MG/DAY
     Route: 037
  8. CLONIDINE. [Suspect]
     Active Substance: CLONIDINE
     Dosage: 30.02 MCG/DAY
     Route: 037
  9. BUPIVACAINE. [Suspect]
     Active Substance: BUPIVACAINE
     Dosage: 1.501 MG/DAY
     Route: 037
     Dates: start: 20151015
  10. MORPHINE [Suspect]
     Active Substance: MORPHINE

REACTIONS (6)
  - Erythema [Recovered/Resolved]
  - Burning sensation [Recovered/Resolved]
  - Paraesthesia [Recovered/Resolved]
  - Headache [Recovered/Resolved]
  - Oral mucosal blistering [Recovered/Resolved]
  - Skin burning sensation [Recovered/Resolved]
